FAERS Safety Report 10194163 (Version 1)
Quarter: 2014Q2

REPORT INFORMATION
  Report Type: Spontaneous
  Country: US (occurrence: US)
  Receive Date: 20140524
  Receipt Date: 20140524
  Transmission Date: 20141212
  Serious: No
  Sender: FDA-Public Use
  Company Number: US-SANOFI-AVENTIS-2013SA068093

PATIENT
  Sex: Female

DRUGS (6)
  1. LANTUS SOLOSTAR [Suspect]
     Route: 051
  2. SOLOSTAR [Suspect]
  3. APIDRA SOLOSTAR [Suspect]
     Route: 065
  4. SOLOSTAR [Suspect]
  5. METFORMIN [Suspect]
     Route: 065
  6. GLIMEPIRIDE [Suspect]
     Route: 065

REACTIONS (3)
  - Defaecation urgency [Unknown]
  - Blood pressure increased [Unknown]
  - Drug dose omission [Unknown]
